FAERS Safety Report 9315579 (Version 1)
Quarter: 2013Q2

REPORT INFORMATION
  Report Type: Spontaneous
  Country: AR (occurrence: AR)
  Receive Date: 20130529
  Receipt Date: 20130529
  Transmission Date: 20140414
  Serious: Yes (Hospitalization)
  Sender: FDA-Public Use
  Company Number: AR-B.I. PHARMACEUTICALS,INC./RIDGEFIELD-2013-RA-00125RA

PATIENT
  Age: 64 Year
  Sex: Female

DRUGS (1)
  1. PRADAXA [Suspect]
     Indication: ARTHRODESIS
     Dosage: 220 MG
     Route: 048
     Dates: start: 201303, end: 201304

REACTIONS (2)
  - Deep vein thrombosis [Unknown]
  - Off label use [Unknown]
